FAERS Safety Report 6110097-9 (Version None)
Quarter: 2009Q1

REPORT INFORMATION
  Report Type: 
  Country: None (occurrence: None)
  Receive Date: 20090310
  Receipt Date: 20090302
  Transmission Date: 20090719
  Serious: Yes (Hospitalization)
  Sender: FDA-Public Use
  Company Number: ES-MERCK-0903ESP00004

PATIENT
  Age: 84 Year
  Sex: Female

DRUGS (7)
  1. ZETIA [Suspect]
     Indication: HYPERCHOLESTEROLAEMIA
     Route: 048
     Dates: start: 20081118
  2. LOVASTATIN [Concomitant]
     Indication: HYPERCHOLESTEROLAEMIA
     Route: 065
  3. DONEPEZIL HYDROCHLORIDE [Concomitant]
     Route: 048
  4. ESCITALOPRAM OXALATE [Concomitant]
     Route: 048
  5. METFORMIN HYDROCHLORIDE AND VILDAGLIPTIN [Suspect]
     Indication: HYPERGLYCAEMIA
     Route: 048
     Dates: start: 20081118, end: 20090131
  6. HYDROCHLOROTHIAZIDE AND TELMISARTAN [Concomitant]
     Route: 065
  7. GLIPIZIDE [Concomitant]
     Route: 048

REACTIONS (2)
  - HYPOCHOLESTEROLAEMIA [None]
  - HYPOGLYCAEMIA [None]
